FAERS Safety Report 7892194-0 (Version None)
Quarter: 2011Q4

REPORT INFORMATION
  Report Type: 
  Country: None (occurrence: None)
  Receive Date: 20111104
  Receipt Date: 20111102
  Transmission Date: 20120403
  Serious: Yes (Death, Other)
  Sender: FDA-Public Use
  Company Number: US-BRISTOL-MYERS SQUIBB COMPANY-15998339

PATIENT
  Age: 75 Year
  Sex: Male
  Weight: 79 kg

DRUGS (2)
  1. LEUKINE [Suspect]
     Indication: MALIGNANT MELANOMA
     Dosage: LAST ADMIN: 19JUL11. NO OF COURSES: 3. C3: 3500 MCG
     Route: 058
     Dates: start: 20110527, end: 20110719
  2. IPILIMUMAB [Suspect]
     Indication: MALIGNANT MELANOMA
     Dosage: LAST ADMIN: 6JUL11. NO OF COURSES: 3.
     Route: 042
     Dates: start: 20110527, end: 20110706

REACTIONS (3)
  - LYMPHOCYTE COUNT DECREASED [None]
  - NEOPLASM MALIGNANT [None]
  - CARDIAC ARREST [None]
